FAERS Safety Report 9341655 (Version 1)
Quarter: 2013Q2

REPORT INFORMATION
  Report Type: Spontaneous
  Country: CN (occurrence: None)
  Receive Date: 20130606
  Receipt Date: 20130606
  Transmission Date: 20140414
  Serious: Yes (Other)
  Sender: FDA-Public Use
  Company Number: SYM-2013-04346

PATIENT
  Age: 71 Year
  Sex: Male

DRUGS (8)
  1. HERBESSER [Suspect]
     Indication: CHEST PAIN
     Route: 042
     Dates: start: 20130409, end: 20130421
  2. GLYCERYLTRINITRATE [Concomitant]
  3. AMBROXOL [Concomitant]
  4. INSULIN [Concomitant]
  5. NITROPRUSSIDE [Concomitant]
  6. LEVOFLOXACIN [Concomitant]
  7. ATENOLOL [Concomitant]
  8. OMEPRAZOLE [Concomitant]

REACTIONS (3)
  - Nodal rhythm [None]
  - Blood pressure decreased [None]
  - Coronary artery bypass [None]
